FAERS Safety Report 17907763 (Version 1)
Quarter: 2020Q2

REPORT INFORMATION
  Report Type: Spontaneous
  Country: US (occurrence: US)
  Receive Date: 20200521
  Receipt Date: 20200521
  Transmission Date: 20200714
  Serious: No
  Sender: FDA-Public Use
  Company Number: None

PATIENT
  Age: 62 Year

DRUGS (1)
  1. AMPHADASE [Suspect]
     Active Substance: HYALURONIDASE

REACTIONS (2)
  - Skin reaction [None]
  - Arthritis [None]

NARRATIVE: CASE EVENT DATE: 20200407
